FAERS Safety Report 5286016-4 (Version None)
Quarter: 2007Q2

REPORT INFORMATION
  Report Type: 
  Country: None (occurrence: None)
  Receive Date: 20070404
  Receipt Date: 20070322
  Transmission Date: 20071010
  Serious: Yes (Hospitalization, Other)
  Sender: FDA-Public Use
  Company Number: US-AMGEN-US196221

PATIENT
  Sex: Female
  Weight: 110.8 kg

DRUGS (13)
  1. ARANESP [Suspect]
     Indication: DIALYSIS
     Route: 058
     Dates: start: 20050128, end: 20061005
  2. EPOGEN [Suspect]
     Indication: DIALYSIS
  3. DIGITEK [Concomitant]
     Dates: start: 20040521
  4. ALDACTONE [Concomitant]
     Dates: start: 20040521
  5. COLACE [Concomitant]
     Dates: start: 20040521
  6. NIFEREX [Concomitant]
     Dates: start: 20050413
  7. NEPHRO-VITE [Concomitant]
     Dates: start: 20050725
  8. VASOTEC [Concomitant]
     Dates: start: 20060928
  9. POTASSIUM ACETATE [Concomitant]
     Dates: start: 20060928
  10. COUMADIN [Concomitant]
     Dates: start: 20060928
  11. CALCITRIOL [Concomitant]
     Dates: start: 20060929
  12. TUMS [Concomitant]
     Dates: start: 20060929
  13. CORTICOSTEROID NOS [Concomitant]

REACTIONS (5)
  - CALCIPHYLAXIS [None]
  - HOSPITALISATION [None]
  - OEDEMA PERIPHERAL [None]
  - RASH [None]
  - THERAPEUTIC RESPONSE DECREASED [None]
